FAERS Safety Report 24568755 (Version 2)
Quarter: 2024Q4

REPORT INFORMATION
  Report Type: Spontaneous
  Country: US (occurrence: US)
  Receive Date: 20241031
  Receipt Date: 20241121
  Transmission Date: 20250115
  Serious: No
  Sender: INSUD PHARMA
  Company Number: US-INSUD PHARMA-2410US08122

PATIENT

DRUGS (1)
  1. ENILLORING [Suspect]
     Active Substance: ETHINYL ESTRADIOL\ETONOGESTREL
     Indication: Contraception
     Dosage: ONE RING MONTHLY
     Route: 067
     Dates: start: 202408, end: 202409

REACTIONS (5)
  - Dyspareunia [Recovered/Resolved]
  - Medical device site irritation [Recovered/Resolved]
  - Medical device discomfort [Recovered/Resolved]
  - Medical device pain [Recovered/Resolved]
  - Device use issue [Recovered/Resolved]

NARRATIVE: CASE EVENT DATE: 20240801
